FAERS Safety Report 8962615 (Version 1)
Quarter: 2013Q1

REPORT INFORMATION
  Report Type: Spontaneous
  Country: US (occurrence: None)
  Receive Date: 20121211
  Receipt Date: 20121211
  Transmission Date: 20140127
  Serious: Yes (Hospitalization)
  Sender: FDA-Public Use
  Company Number: None

PATIENT
  Age: 40 Year
  Sex: Female
  Weight: 94.8 kg

DRUGS (10)
  1. TEMOZOLOMIDE [Suspect]
     Indication: METASTATIC MALIGNANT MELANOMA
     Dosage: 425 MG DAYS 1-5
     Dates: start: 20121109, end: 20121113
  2. CRANBERRY CAPSULE [Concomitant]
  3. ESTRADIOL NORETHINDRONE [Concomitant]
  4. GABAPENTIN [Concomitant]
  5. KYTRIL [Concomitant]
  6. L-LYSINE [Concomitant]
  7. MULTIVITAMIN [Concomitant]
  8. SERTRADINE [Concomitant]
  9. SODIUM HYPOCHLORITE [Concomitant]
  10. VITAMIN C [Concomitant]

REACTIONS (3)
  - Lymphoedema [None]
  - Impaired healing [None]
  - Soft tissue necrosis [None]
